FAERS Safety Report 7980199-0 (Version None)
Quarter: 2011Q4

REPORT INFORMATION
  Report Type: 
  Country: None (occurrence: None)
  Receive Date: 20111212
  Receipt Date: 20111130
  Transmission Date: 20120403
  Serious: Yes (Life-Threatening, Hospitalization, Disabling)
  Sender: FDA-Public Use
  Company Number: 2011HGS-002731

PATIENT
  Age: 49 Year
  Sex: Female
  Weight: 223 kg

DRUGS (15)
  1. METHOTREXATE [Concomitant]
  2. PREDNISONE [Concomitant]
  3. RANITIDINE HCL (RANITIDINE HYDROCHLORIDE) (RANITIDINE HYDROCHLORIDE) [Concomitant]
  4. REMERON [Concomitant]
  5. BENLYSTA [Suspect]
     Indication: SYSTEMIC LUPUS ERYTHEMATOSUS
     Dosage: 1000 MG, 1 IN 14 D, INTRAVENOUS DRIP
     Route: 041
     Dates: start: 20110915, end: 20110915
  6. PLAQUENIL(HYDROXYCHLOROQUINE SULFATE)(HYDROXYCHLOROQUINE SULFATE) [Concomitant]
  7. FOLIC ACID [Concomitant]
  8. FUROSEMIDE [Concomitant]
  9. CELEXA [Concomitant]
  10. ZOFRAN (ONDANSETRON HYDROCHLORIDE) (ONDANSETRON HYDROCHLORIDE) [Concomitant]
  11. SYNTHROID (LEVOTHYROXINE SODIUM) (LEVOTHYROXINE SODIUM) [Concomitant]
  12. PROTONIX (PANTOPRAZOLE SODIUM) (PANTOPRAZOLE SODIUM) [Concomitant]
  13. VESICARE (URINARY ANTISPASMODICS )(SOLIFENACIN SUCCINATE) [Concomitant]
  14. RESTORIL (TEMAZEPAM) (TEMAZEPAM) [Concomitant]
  15. LEUCOVORIN (FOLINIC ACID) (FOLINIC ACID) [Concomitant]

REACTIONS (2)
  - THALAMIC INFARCTION [None]
  - HEPATIC STEATOSIS [None]
